FAERS Safety Report 5749980-2 (Version None)
Quarter: 2008Q2

REPORT INFORMATION
  Report Type: 
  Country: None (occurrence: None)
  Receive Date: 20080527
  Receipt Date: 20080514
  Transmission Date: 20081010
  Serious: Yes (Other)
  Sender: FDA-Public Use
  Company Number: CA-ELI_LILLY_AND_COMPANY-CA200805003261

PATIENT
  Sex: Female

DRUGS (3)
  1. CYMBALTA [Suspect]
     Dosage: 60 MG, UNK
  2. EFFEXOR [Concomitant]
     Dosage: 75 MG, UNK
  3. CRESTOR [Concomitant]
     Dosage: 1 D/F, UNK

REACTIONS (3)
  - HYPERHIDROSIS [None]
  - HYPERTENSION [None]
  - SYNCOPE [None]
